FAERS Safety Report 7853165 (Version 3)
Quarter: 2014Q2

REPORT INFORMATION
  Report Type: Report from Study
  Country: US (occurrence: US)
  Receive Date: 20110311
  Receipt Date: 20140626
  Transmission Date: 20141212
  Serious: Yes (Death, Life-Threatening, Hospitalization, Other)
  Sender: FDA-Public Use
  Company Number: US-MPIJNJ-2011-00863

PATIENT
  Age: 76 Year
  Sex: Male
  Weight: 97.51 kg

DRUGS (1)
  1. VELCADE [Suspect]
     Indication: PLASMA CELL MYELOMA
     Dosage: 2900 MG, Q3WEEKS ON DAYS 1, 4, 8, 11, 22
     Route: 042
     Dates: start: 20100907, end: 20100921

REACTIONS (3)
  - Cytomegalovirus infection [Fatal]
  - Plasma cell myeloma [Fatal]
  - Pyrexia [Fatal]
